FAERS Safety Report 15361056 (Version 8)
Quarter: 2018Q4

REPORT INFORMATION
  Report Type: Report from Study
  Country: GR (occurrence: GR)
  Receive Date: 20180907
  Receipt Date: 20181217
  Transmission Date: 20190204
  Serious: Yes (Hospitalization)
  Sender: FDA-Public Use
  Company Number: GR-ROCHE-2178865

PATIENT
  Age: 42 Year
  Sex: Male
  Weight: 63 kg

DRUGS (13)
  1. VEMURAFENIB. [Suspect]
     Active Substance: VEMURAFENIB
     Indication: MALIGNANT MELANOMA
     Dosage: 960 MG (FOUR, 240 MG TABLETS)?DATE OF MOST RECENT DOSE OF VEMURAFENIB PRIOR TO AE ONSET: 02/AUG/2018
     Route: 048
     Dates: start: 20170424
  2. FILICINE [Concomitant]
     Indication: BLOOD FOLATE DECREASED
     Route: 065
     Dates: start: 20180919, end: 20181127
  3. LOSEC [Concomitant]
     Active Substance: OMEPRAZOLE
     Indication: ABDOMINAL PAIN
     Route: 065
     Dates: start: 20180527, end: 20180630
  4. KLARICID [Concomitant]
     Active Substance: CLARITHROMYCIN
     Indication: PYREXIA
     Route: 065
     Dates: start: 20180806, end: 20180810
  5. FUNGUSTATIN [Concomitant]
     Active Substance: FLUCONAZOLE
     Indication: INFECTION PROPHYLAXIS
     Route: 065
     Dates: start: 20181008, end: 20181022
  6. BACTRIMEL [Concomitant]
     Active Substance: SULFAMETHOXAZOLE\TRIMETHOPRIM
     Indication: INFECTION PROPHYLAXIS
     Route: 065
     Dates: start: 20181008, end: 20181022
  7. COBIMETINIB. [Suspect]
     Active Substance: COBIMETINIB
     Indication: MALIGNANT MELANOMA
     Dosage: (THREE, 20 MG TABLETS)?DATE OF MOST RECENT DOSE OF COBIMETINIB PRIOR TO AE ONSET: 02/AUG/2018
     Route: 048
     Dates: start: 20170424
  8. DOMPERIDONE [Concomitant]
     Active Substance: DOMPERIDONE
     Indication: ABDOMINAL PAIN
     Route: 065
     Dates: start: 20180527, end: 20180630
  9. FUROSEMIDE. [Concomitant]
     Active Substance: FUROSEMIDE
     Indication: OEDEMA PERIPHERAL
     Route: 065
     Dates: start: 20180104
  10. FILICINE [Concomitant]
     Indication: IRON DEFICIENCY ANAEMIA
     Route: 065
     Dates: start: 20180215
  11. TARDYFERON (GREECE) [Concomitant]
     Indication: IRON DEFICIENCY ANAEMIA
     Route: 065
     Dates: start: 20180208, end: 20180813
  12. ATEZOLIZUMAB. [Suspect]
     Active Substance: ATEZOLIZUMAB
     Indication: MALIGNANT MELANOMA
     Dosage: TOTAL VOLUME OF LAST BLINDED ATEZOLIZUMAB ADMINISTERED PRIOR TO SAE ONSET ON 02/JUL/2018 WAS 250 ML
     Route: 042
     Dates: start: 20170522
  13. FERINJECT [Concomitant]
     Active Substance: FERRIC CARBOXYMALTOSE
     Indication: IRON DEFICIENCY
     Route: 065
     Dates: start: 20180918, end: 20180918

REACTIONS (1)
  - Nephritis [Recovered/Resolved]

NARRATIVE: CASE EVENT DATE: 20180709
